FAERS Safety Report 18361004 (Version 1)
Quarter: 2020Q4

REPORT INFORMATION
  Report Type: Report from Study
  Country: US (occurrence: US)
  Receive Date: 20201008
  Receipt Date: 20201008
  Transmission Date: 20210114
  Serious: Yes (Death)
  Sender: FDA-Public Use
  Company Number: US-ASTRAZENECA-2020SF28946

PATIENT
  Age: 23895 Day
  Sex: Male

DRUGS (1)
  1. LYNPARZA [Suspect]
     Active Substance: OLAPARIB
     Indication: PROSTATE CANCER STAGE IV
     Route: 048
     Dates: start: 202008

REACTIONS (2)
  - Death [Fatal]
  - Hypophagia [Unknown]

NARRATIVE: CASE EVENT DATE: 20201001
